FAERS Safety Report 7485823-7 (Version None)
Quarter: 2011Q2

REPORT INFORMATION
  Report Type: 
  Country: None (occurrence: None)
  Receive Date: 20110517
  Receipt Date: 20110111
  Transmission Date: 20111010
  Serious: Yes (Life-Threatening, Hospitalization)
  Sender: FDA-Public Use
  Company Number: SI-BAYER-2011-002920

PATIENT
  Age: 25 Year
  Sex: Female
  Weight: 60 kg

DRUGS (6)
  1. OXYCONTIN [Concomitant]
     Indication: ARTHRITIS BACTERIAL
     Route: 048
  2. ARCOXIA [Concomitant]
     Indication: ARTHRITIS BACTERIAL
     Dosage: UNKNOWN
     Route: 048
     Dates: end: 20101025
  3. FRAGMIN [Concomitant]
     Indication: ARTHRITIS BACTERIAL
     Route: 030
     Dates: end: 20101025
  4. CIPRO [Suspect]
     Indication: ARTHRITIS BACTERIAL
     Route: 048
     Dates: start: 20100401, end: 20101004
  5. ESCITALOPRAM [Concomitant]
     Indication: DEPRESSION
     Dosage: UNKNOWN
     Route: 048
     Dates: end: 20101025
  6. RIFAMPICIN [Suspect]
     Indication: ARTHRITIS BACTERIAL

REACTIONS (1)
  - THROMBOCYTOPENIA [None]
